FAERS Safety Report 4347543-7 (Version None)
Quarter: 2004Q2

REPORT INFORMATION
  Report Type: 
  Country: None (occurrence: None)
  Receive Date: 20040426
  Receipt Date: 20040426
  Transmission Date: 20050107
  Serious: Yes (Death)
  Sender: FDA-Public Use
  Company Number: None

PATIENT
  Age: 39 Year
  Sex: Female
  Weight: 72.5755 kg

DRUGS (1)
  1. CORDIS CYPHER STENT [Suspect]
     Indication: CORONARY ARTERY DISEASE
     Dosage: INTRA-ARTERIAL
     Route: 013
     Dates: start: 20040118, end: 20040322

REACTIONS (4)
  - ARTERIAL OCCLUSIVE DISEASE [None]
  - LOSS OF CONSCIOUSNESS [None]
  - MYOCARDIAL INFARCTION [None]
  - PAIN [None]
